FAERS Safety Report 7610310-2 (Version None)
Quarter: 2011Q3

REPORT INFORMATION
  Report Type: 
  Country: None (occurrence: None)
  Receive Date: 20110715
  Receipt Date: 20110711
  Transmission Date: 20111222
  Serious: Yes (Life-Threatening)
  Sender: FDA-Public Use
  Company Number: CO-CELGENEUS-036-C5013-11060816

PATIENT
  Sex: Female
  Weight: 49.5 kg

DRUGS (8)
  1. LENALIDOMIDE [Suspect]
     Dosage: 2.5 MILLIGRAM
     Route: 048
     Dates: start: 20101130
  2. LOSARTAN [Concomitant]
     Indication: HYPERTENSION
     Dosage: 50 MILLIGRAM
     Route: 048
     Dates: start: 19980101
  3. ALBENDAZOLE [Concomitant]
     Dosage: 200 MILLIGRAM
     Route: 048
     Dates: start: 20110518, end: 20110520
  4. ENOXAPARIN SODIUM [Concomitant]
     Dosage: 40 MILLIGRAM
     Route: 058
     Dates: start: 20110419, end: 20110518
  5. METOPROLOL TARTRATE [Concomitant]
     Indication: HYPERTENSION
     Dosage: 50 MILLIGRAM
     Route: 048
     Dates: start: 19980101
  6. LENALIDOMIDE [Suspect]
     Dosage: 7.5 MILLIGRAM
     Route: 048
     Dates: start: 20110516, end: 20110602
  7. LENALIDOMIDE [Suspect]
     Dosage: 5 MILLIGRAM
     Route: 048
     Dates: start: 20110613
  8. TINIDAZOLE [Concomitant]
     Dosage: 500 MILLIGRAM
     Route: 048
     Dates: start: 20110521, end: 20110522

REACTIONS (1)
  - NEUTROPENIA [None]
